FAERS Safety Report 18000102 (Version 1)
Quarter: 2020Q3

REPORT INFORMATION
  Report Type: Spontaneous
  Country: US (occurrence: US)
  Receive Date: 20200709
  Receipt Date: 20200709
  Transmission Date: 20201103
  Serious: Yes (Other)
  Sender: FDA-Public Use
  Company Number: US-AMGEN-USASP2020107408

PATIENT
  Sex: Female

DRUGS (2)
  1. PROLIA [Suspect]
     Active Substance: DENOSUMAB
     Indication: OSTEOPOROSIS
     Dosage: UNK
     Route: 065
     Dates: end: 2019
  2. AIMOVIG [Suspect]
     Active Substance: ERENUMAB-AOOE
     Indication: MIGRAINE
     Dosage: 140 MILLIGRAM
     Route: 065
     Dates: start: 2018

REACTIONS (8)
  - Arthralgia [Recovered/Resolved]
  - Hip fracture [Recovered/Resolved]
  - Rash [Unknown]
  - Pyrexia [Recovered/Resolved]
  - Quality of life decreased [Unknown]
  - Bone pain [Recovered/Resolved]
  - Headache [Recovered/Resolved]
  - Constipation [Unknown]
